FAERS Safety Report 13115630 (Version 2)
Quarter: 2018Q2

REPORT INFORMATION
  Report Type: Spontaneous
  Country: IN (occurrence: IN)
  Receive Date: 20170114
  Receipt Date: 20180413
  Transmission Date: 20180711
  Serious: Yes (Hospitalization, Other)
  Sender: FDA-Public Use
  Company Number: IN-STRIDES ARCOLAB LIMITED-2016SP020808

PATIENT

DRUGS (8)
  1. PIPERACILLIN AND TAZOBACTAM [Concomitant]
     Active Substance: PIPERACILLIN SODIUM\TAZOBACTAM SODIUM
     Indication: SEPSIS NEONATAL
  2. PIPERACILLIN AND TAZOBACTAM [Concomitant]
     Active Substance: PIPERACILLIN SODIUM\TAZOBACTAM SODIUM
     Indication: NEONATAL ASPHYXIA
     Dosage: UNK
  3. AMIKACIN. [Concomitant]
     Active Substance: AMIKACIN
     Indication: SEPSIS NEONATAL
  4. DOPAMINE [Concomitant]
     Active Substance: DOPAMINE\DOPAMINE HYDROCHLORIDE
     Indication: HYPOTENSION
     Dosage: 5 ?G/KG, UNKNOWN
     Route: 065
  5. AMIKACIN. [Concomitant]
     Active Substance: AMIKACIN
     Indication: NEONATAL ASPHYXIA
     Dosage: UNK
     Route: 065
  6. CALCIUM [Concomitant]
     Active Substance: CALCIUM
     Indication: PRODUCT USED FOR UNKNOWN INDICATION
     Dosage: UNK
     Route: 065
  7. VANCOMYCIN [Suspect]
     Active Substance: VANCOMYCIN
     Indication: ANTIBIOTIC PROPHYLAXIS
     Dosage: UNK
     Route: 065
  8. OXYGEN. [Concomitant]
     Active Substance: OXYGEN
     Indication: MECHANICAL VENTILATION
     Dosage: SIMV, FRACTION OF INSPIRED OXYGEN WAS 100
     Route: 065

REACTIONS (2)
  - Thrombocytopenia neonatal [Recovered/Resolved]
  - Neonatal gastrointestinal haemorrhage [Recovered/Resolved]
